FAERS Safety Report 6861264-8 (Version None)
Quarter: 2010Q3

REPORT INFORMATION
  Report Type: 
  Country: None (occurrence: None)
  Receive Date: 20100720
  Receipt Date: 20100707
  Transmission Date: 20110219
  Serious: Yes (Hospitalization)
  Sender: FDA-Public Use
  Company Number: BR-ELI_LILLY_AND_COMPANY-BR201004004189

PATIENT
  Sex: Female
  Weight: 50 kg

DRUGS (12)
  1. FORTEO [Suspect]
     Indication: OSTEOPOROSIS
     Dosage: 20 UG, DAILY (1/D)
     Route: 058
     Dates: start: 20080903
  2. SERTRALINE HYDROCHLORIDE [Concomitant]
     Dosage: UNK, DAILY (1/D)
     Route: 065
  3. FUROSEMIDE [Concomitant]
     Dosage: UNK, DAILY (1/D)
     Route: 065
  4. ALDACTONE [Concomitant]
     Dosage: UNK, DAILY (1/D)
     Route: 065
  5. LOSARTAN POSTASSIUM [Concomitant]
     Dosage: UNK, DAILY (1/D)
     Route: 065
  6. RAMIPRIL [Concomitant]
     Dosage: UNK, DAILY (1/D)
     Route: 065
  7. DIPIRONA [Concomitant]
     Dosage: UNK, DAILY (1/D)
     Route: 065
  8. DIMETICONA [Concomitant]
     Dosage: UNK, DAILY (1/D)
     Route: 065
  9. BISALAX [Concomitant]
     Dosage: UNK, DAILY (1/D)
     Route: 065
  10. CARVEDILOL [Concomitant]
     Dosage: UNK, DAILY (1/D)
     Route: 065
  11. SINVASTATINA [Concomitant]
     Dosage: UNK, DAILY (1/D)
     Route: 065
  12. ARADOIS [Concomitant]
     Dosage: UNK, DAILY (1/D)
     Route: 065

REACTIONS (2)
  - CARDIOMEGALY [None]
  - NASOPHARYNGITIS [None]
